FAERS Safety Report 8162835-1 (Version None)
Quarter: 2012Q1

REPORT INFORMATION
  Report Type: 
  Country: None (occurrence: None)
  Receive Date: 20120224
  Receipt Date: 20120215
  Transmission Date: 20120608
  Serious: Yes (Hospitalization)
  Sender: FDA-Public Use
  Company Number: DE-MPIJNJ-2011-00498

PATIENT

DRUGS (5)
  1. VELCADE [Suspect]
     Indication: MULTIPLE MYELOMA
     Dosage: 1.95 MG, UNK
     Route: 042
     Dates: start: 20101207, end: 20110204
  2. ADRIAMYCIN PFS [Concomitant]
     Indication: MULTIPLE MYELOMA
     Dosage: UNK
     Dates: start: 20101207, end: 20110204
  3. ACYCLOVIR [Concomitant]
     Indication: PROPHYLAXIS
     Dosage: 400 MG, UNK
     Dates: start: 20101207, end: 20110204
  4. DEXAMETHASONE [Concomitant]
     Indication: MULTIPLE MYELOMA
     Dosage: 20 MG, UNK
     Dates: start: 20101207, end: 20110202
  5. COTRIM [Concomitant]
     Indication: PROPHYLAXIS
     Dosage: 960 MG, UNK
     Dates: start: 20101207, end: 20110204

REACTIONS (3)
  - CONDITION AGGRAVATED [None]
  - ABDOMINAL PAIN [None]
  - CROHN'S DISEASE [None]
